FAERS Safety Report 6089317-5 (Version None)
Quarter: 2009Q1

REPORT INFORMATION
  Report Type: 
  Country: None (occurrence: None)
  Receive Date: 20090224
  Receipt Date: 20090212
  Transmission Date: 20090719
  Serious: Yes (Other)
  Sender: FDA-Public Use
  Company Number: FR-GENENTECH-272300

PATIENT
  Sex: Male
  Weight: 110 kg

DRUGS (4)
  1. XOLAIR [Suspect]
     Indication: ASTHMA
     Dosage: 750 MG, 1/MONTH
     Route: 058
  2. SERETIDE [Concomitant]
     Indication: DRUG USE FOR UNKNOWN INDICATION
  3. XYZAL [Concomitant]
     Indication: DRUG USE FOR UNKNOWN INDICATION
  4. SINGULAIR [Concomitant]
     Indication: DRUG USE FOR UNKNOWN INDICATION

REACTIONS (1)
  - WEIGHT DECREASED [None]
